FAERS Safety Report 6488859-8 (Version None)
Quarter: 2009Q4

REPORT INFORMATION
  Report Type: 
  Country: None (occurrence: None)
  Receive Date: 20091207
  Receipt Date: 20091130
  Transmission Date: 20100525
  Serious: Yes (Other)
  Sender: FDA-Public Use
  Company Number: 2009SP034706

PATIENT
  Age: 31 Year
  Sex: Female

DRUGS (2)
  1. IMPLANON [Suspect]
     Indication: CONTRACEPTION
     Dates: start: 20090914, end: 20091026
  2. TRILEPTAL [Concomitant]

REACTIONS (4)
  - CAPILLARY DISORDER [None]
  - CONVULSION [None]
  - INFLAMMATION [None]
  - PAIN IN EXTREMITY [None]
